FAERS Safety Report 21458852 (Version 1)
Quarter: 2022Q4

REPORT INFORMATION
  Report Type: Spontaneous
  Country: FR (occurrence: FR)
  Receive Date: 20221014
  Receipt Date: 20221014
  Transmission Date: 20230113
  Serious: Yes (Hospitalization, Other)
  Sender: FDA-Public Use
  Company Number: None

PATIENT
  Age: 51 Year
  Sex: Male
  Weight: 67 kg

DRUGS (11)
  1. PROPOFOL [Suspect]
     Active Substance: PROPOFOL
     Indication: Sedation
     Dosage: 0.20 ML/HOUR
     Route: 042
     Dates: start: 20210401, end: 20210521
  2. CIPROFLOXACIN [Suspect]
     Active Substance: CIPROFLOXACIN
     Indication: Antibiotic prophylaxis
     Dosage: 400 MG, QD
     Route: 042
     Dates: start: 20210402, end: 20210406
  3. MEROPENEM ANHYDROUS [Suspect]
     Active Substance: MEROPENEM ANHYDROUS
     Indication: Antibiotic prophylaxis
     Dosage: 1G, QD
     Route: 042
     Dates: start: 20210401, end: 20210402
  4. ERTAPENEM [Suspect]
     Active Substance: ERTAPENEM
     Indication: Antibiotic prophylaxis
     Route: 042
     Dates: start: 20210331, end: 20210331
  5. HEPARIN [Suspect]
     Active Substance: HEPARIN SODIUM
     Indication: Thrombosis prophylaxis
     Dosage: 6000 IU, QD
     Route: 058
     Dates: start: 20210316, end: 20210414
  6. AMOXICILLIN [Suspect]
     Active Substance: AMOXICILLIN
     Indication: Antibiotic prophylaxis
     Dosage: 3 G, QD
     Route: 065
     Dates: start: 202104, end: 20210422
  7. SUFENTANIL [Suspect]
     Active Substance: SUFENTANIL
     Indication: Sedation
     Dosage: 0.5 ML/ HOUR
     Route: 042
     Dates: start: 20210401
  8. IMIPENEM [Suspect]
     Active Substance: IMIPENEM
     Indication: Antibiotic prophylaxis
     Dosage: 2 G, QD
     Route: 042
     Dates: start: 202104, end: 20210421
  9. LANSOPRAZOLE [Suspect]
     Active Substance: LANSOPRAZOLE
     Indication: Prophylaxis against gastrointestinal ulcer
     Dosage: 30 MG, QD
     Route: 048
     Dates: start: 20210403
  10. INSULIN NOS [Suspect]
     Active Substance: INSULIN NOS
     Indication: Insulin therapy
     Dosage: 100 IU/ML DEPENDING ON THE GLYCEMIA
     Route: 058
     Dates: start: 20210406, end: 20210409
  11. IOMERON [Suspect]
     Active Substance: IOMEPROL
     Indication: Computerised tomogram
     Dosage: 1 TIME TOTAL, SINGLE DOSE
     Route: 042
     Dates: start: 202104, end: 20210420

REACTIONS (2)
  - Drug reaction with eosinophilia and systemic symptoms [Recovering/Resolving]
  - Rash morbilliform [Recovering/Resolving]

NARRATIVE: CASE EVENT DATE: 20210406
